FAERS Safety Report 6647615-8 (Version None)
Quarter: 2010Q1

REPORT INFORMATION
  Report Type: 
  Country: None (occurrence: None)
  Receive Date: 20100323
  Receipt Date: 20100323
  Transmission Date: 20100710
  Serious: Yes (Other)
  Sender: FDA-Public Use
  Company Number: None

PATIENT
  Age: 57 Year
  Sex: Female
  Weight: 68.9467 kg

DRUGS (1)
  1. KEPPRA XR [Suspect]
     Indication: EPILEPSY
     Dosage: 500 2 PO
     Route: 048
     Dates: start: 20090830, end: 20100227

REACTIONS (4)
  - DEPRESSION SUICIDAL [None]
  - FATIGUE [None]
  - MYALGIA [None]
  - WEIGHT INCREASED [None]
